FAERS Safety Report 5085944-2 (Version None)
Quarter: 2006Q3

REPORT INFORMATION
  Report Type: 
  Country: None (occurrence: None)
  Receive Date: 20060817
  Receipt Date: 20060804
  Transmission Date: 20061208
  Serious: Yes (Other)
  Sender: FDA-Public Use
  Company Number: 2006090565

PATIENT
  Age: 74 Year
  Sex: Female
  Weight: 80 kg

DRUGS (7)
  1. DETRUSITOL SR (TOLTERODINE) [Suspect]
     Indication: HYPERTONIC BLADDER
     Dosage: 4 MG, ORAL
     Route: 048
     Dates: start: 20060619, end: 20060621
  2. BUP-4 (PROPIVERINE HYDROCHLORIDE) [Concomitant]
  3. CANDESARTAN CILEXETIL (CANDESARTAN CILEXETIL) [Concomitant]
  4. NIVADIL (NILVADIPINE) [Concomitant]
  5. PRAVASTATIN [Concomitant]
  6. ROXATIDINE ACETATE HCL [Concomitant]
  7. GASTROM (ECABET MONOSODIUM) [Concomitant]

REACTIONS (6)
  - HYPERTENSION [None]
  - OEDEMA PERIPHERAL [None]
  - PROTEIN URINE PRESENT [None]
  - THIRST [None]
  - URINE OUTPUT DECREASED [None]
  - WEIGHT INCREASED [None]
